FAERS Safety Report 24155523 (Version 2)
Quarter: 2024Q3

REPORT INFORMATION
  Report Type: Spontaneous
  Country: FR (occurrence: FR)
  Receive Date: 20240731
  Receipt Date: 20240808
  Transmission Date: 20241016
  Serious: No
  Sender: BLUEPRINT MEDICINES
  Company Number: FR-Blueprint Medicines Corporation-SP-FR-2024-001522

PATIENT
  Age: 45 Year
  Sex: Female

DRUGS (1)
  1. AVAPRITINIB [Suspect]
     Active Substance: AVAPRITINIB
     Indication: Product used for unknown indication
     Route: 065
     Dates: start: 202407, end: 20240719

REACTIONS (7)
  - Fatigue [Unknown]
  - Dizziness [Unknown]
  - Myalgia [Unknown]
  - Unevaluable event [Unknown]
  - Asthenia [Unknown]
  - Abdominal pain [Unknown]
  - Emotional disorder [Unknown]

NARRATIVE: CASE EVENT DATE: 20240720
